FAERS Safety Report 21456161 (Version 1)
Quarter: 2022Q4

REPORT INFORMATION
  Report Type: Spontaneous
  Country: DE (occurrence: DE)
  Receive Date: 20221014
  Receipt Date: 20221014
  Transmission Date: 20230113
  Serious: Yes (Hospitalization, Disabling, Other)
  Sender: FDA-Public Use
  Company Number: DE-BFARM-22007264

PATIENT
  Age: 44 Year
  Sex: Female
  Weight: 58 kg

DRUGS (1)
  1. CIPROFLOXACIN HYDROCHLORIDE [Suspect]
     Active Substance: CIPROFLOXACIN HYDROCHLORIDE
     Indication: Laryngeal inflammation
     Dosage: 500 MILLIGRAM, BID, 1-0-1
     Route: 065
     Dates: start: 20200403, end: 20200407

REACTIONS (123)
  - Muscular weakness [Not Recovered/Not Resolved]
  - Dysstasia [Not Recovered/Not Resolved]
  - Mitochondrial cytopathy [Unknown]
  - Syncope [Unknown]
  - Disability [Unknown]
  - Aphasia [Not Recovered/Not Resolved]
  - Arrhythmia [Not Recovered/Not Resolved]
  - Gait inability [Not Recovered/Not Resolved]
  - Autonomic neuropathy [Unknown]
  - Fatigue [Not Recovered/Not Resolved]
  - Toxic neuropathy [Not Recovered/Not Resolved]
  - Impaired gastric emptying [Not Recovered/Not Resolved]
  - Wheelchair user [Not Recovered/Not Resolved]
  - Somnolence [Not Recovered/Not Resolved]
  - Neurotoxicity [Unknown]
  - Anxiety [Not Recovered/Not Resolved]
  - Immunodeficiency [Not Recovered/Not Resolved]
  - Hyperbilirubinaemia [Not Recovered/Not Resolved]
  - Impaired gastric emptying [Unknown]
  - Bone pain [Not Recovered/Not Resolved]
  - Myofascial pain syndrome [Not Recovered/Not Resolved]
  - Enteritis [Not Recovered/Not Resolved]
  - Depression [Not Recovered/Not Resolved]
  - Arthralgia [Not Recovered/Not Resolved]
  - Fatigue [Not Recovered/Not Resolved]
  - Vomiting [Recovered/Resolved]
  - Metabolic disorder [Not Recovered/Not Resolved]
  - Pain in extremity [Not Recovered/Not Resolved]
  - Feeling abnormal [Recovered/Resolved]
  - Paraesthesia [Not Recovered/Not Resolved]
  - Small fibre neuropathy [Not Recovered/Not Resolved]
  - Pain in extremity [Not Recovered/Not Resolved]
  - Weight decreased [Not Recovered/Not Resolved]
  - Tension headache [Recovered/Resolved]
  - Burning sensation [Not Recovered/Not Resolved]
  - Disturbance in attention [Not Recovered/Not Resolved]
  - Unevaluable event [Recovered/Resolved]
  - Social anxiety disorder [Not Recovered/Not Resolved]
  - Hyperhidrosis [Not Recovered/Not Resolved]
  - Skin reaction [Not Recovered/Not Resolved]
  - Orthostatic intolerance [Unknown]
  - Fungal infection [Not Recovered/Not Resolved]
  - Tendon pain [Unknown]
  - Dry skin [Not Recovered/Not Resolved]
  - Nervousness [Recovered/Resolved]
  - Hyperchlorhydria [Unknown]
  - Photosensitivity reaction [Not Recovered/Not Resolved]
  - Diarrhoea [Unknown]
  - Spinal disorder [Recovered/Resolved]
  - Decreased appetite [Recovered/Resolved]
  - Oropharyngeal pain [Recovered/Resolved]
  - Irritable bowel syndrome [Unknown]
  - Abdominal distension [Not Recovered/Not Resolved]
  - Panic reaction [Recovered/Resolved]
  - Underweight [Not Recovered/Not Resolved]
  - Malaise [Not Recovered/Not Resolved]
  - Insomnia [Not Recovered/Not Resolved]
  - Oral pain [Not Recovered/Not Resolved]
  - Thinking abnormal [Unknown]
  - Dizziness [Not Recovered/Not Resolved]
  - Product communication issue [Unknown]
  - Neuralgia [Unknown]
  - Memory impairment [Not Recovered/Not Resolved]
  - Disorientation [Unknown]
  - Muscle atrophy [Not Recovered/Not Resolved]
  - Confusional state [Unknown]
  - Hypophagia [Not Recovered/Not Resolved]
  - Sleep disorder [Unknown]
  - Abdominal pain upper [Unknown]
  - Mucosal dryness [Not Recovered/Not Resolved]
  - Red blood cell sedimentation rate increased [Unknown]
  - Mitochondrial encephalomyopathy [Not Recovered/Not Resolved]
  - Panic attack [Not Recovered/Not Resolved]
  - Nightmare [Not Recovered/Not Resolved]
  - Pregnenolone deficiency [Unknown]
  - Vitreous floaters [Not Recovered/Not Resolved]
  - Gluten sensitivity [Not Recovered/Not Resolved]
  - Myofascial pain syndrome [Unknown]
  - Collagen disorder [Unknown]
  - Dry eye [Not Recovered/Not Resolved]
  - Arthropathy [Unknown]
  - Copper deficiency [Not Recovered/Not Resolved]
  - Oropharyngeal pain [Recovered/Resolved]
  - Myalgia [Not Recovered/Not Resolved]
  - Gait disturbance [Unknown]
  - Dysphagia [Not Recovered/Not Resolved]
  - Postural orthostatic tachycardia syndrome [Not Recovered/Not Resolved]
  - Muscle tightness [Not Recovered/Not Resolved]
  - Iron deficiency [Not Recovered/Not Resolved]
  - Vitamin B12 deficiency [Not Recovered/Not Resolved]
  - Psychomotor hyperactivity [Recovered/Resolved]
  - Tension headache [Not Recovered/Not Resolved]
  - Vitamin D deficiency [Not Recovered/Not Resolved]
  - Gilbert^s syndrome [Unknown]
  - Toxicity to various agents [Not Recovered/Not Resolved]
  - Visual impairment [Unknown]
  - Intestinal barrier dysfunction [Unknown]
  - Inflammation [Unknown]
  - Asthenia [Not Recovered/Not Resolved]
  - Mobility decreased [Not Recovered/Not Resolved]
  - Skin disorder [Unknown]
  - Tendon disorder [Unknown]
  - Asthenia [Not Recovered/Not Resolved]
  - Alopecia [Not Recovered/Not Resolved]
  - Palpitations [Not Recovered/Not Resolved]
  - Product prescribing issue [Not Recovered/Not Resolved]
  - Retching [Recovered/Resolved]
  - Restlessness [Not Recovered/Not Resolved]
  - Tendonitis [Unknown]
  - Chronic fatigue syndrome [Not Recovered/Not Resolved]
  - Malaise [Not Recovered/Not Resolved]
  - Endocrine disorder [Not Recovered/Not Resolved]
  - Oxidative stress [Unknown]
  - Tendon discomfort [Not Recovered/Not Resolved]
  - Nausea [Recovered/Resolved]
  - Abdominal pain lower [Unknown]
  - Amnesia [Unknown]
  - Pain [Not Recovered/Not Resolved]
  - C-reactive protein increased [Unknown]
  - Tremor [Unknown]
  - Micturition urgency [Recovered/Resolved]
  - Dysbiosis [Not Recovered/Not Resolved]
  - Agitation [Unknown]

NARRATIVE: CASE EVENT DATE: 20200101
